FAERS Safety Report 4830350-6 (Version None)
Quarter: 2005Q4

REPORT INFORMATION
  Report Type: 
  Country: None (occurrence: None)
  Receive Date: 20051115
  Receipt Date: 20051103
  Transmission Date: 20060501
  Serious: Yes (Death, Hospitalization)
  Sender: FDA-Public Use
  Company Number: CLOF-10120

PATIENT
  Age: 21 Year
  Sex: Male

DRUGS (15)
  1. CLOFARABINE [Suspect]
     Indication: ACUTE LYMPHOCYTIC LEUKAEMIA
     Dosage: 52 MG/M2 QD X  5 IV
     Route: 042
     Dates: start: 20050914, end: 20050918
  2. CLOFARABINE [Suspect]
     Indication: ACUTE LYMPHOCYTIC LEUKAEMIA
     Dosage: 52 MG/M2 QD X  5 IV
     Route: 042
     Dates: start: 20051010, end: 20051014
  3. AZITHROMYCIN [Concomitant]
  4. ACYCLOVIR [Concomitant]
  5. ITRACONAZOLE [Concomitant]
  6. SLOW-K [Concomitant]
  7. SANDO-PHOSPHATE [Concomitant]
  8. ONDASETRON [Concomitant]
  9. THYROXINE [Concomitant]
  10. DEXAMETHASONE [Concomitant]
  11. AMIKACIN [Concomitant]
  12. MEROPENEM [Concomitant]
  13. TEICOPLANIN [Concomitant]
  14. CODEINE PHOSPHATE [Concomitant]
  15. MORPHINE SULFATE [Concomitant]

REACTIONS (14)
  - BLOOD CULTURE POSITIVE [None]
  - CATHETER RELATED INFECTION [None]
  - DIARRHOEA [None]
  - DRUG EFFECT DECREASED [None]
  - FLUID IMBALANCE [None]
  - NAUSEA [None]
  - NEUTROPENIA [None]
  - PULSE ABSENT [None]
  - RESPIRATORY DISTRESS [None]
  - SEPTIC SHOCK [None]
  - STAPHYLOCOCCAL INFECTION [None]
  - URINE OUTPUT DECREASED [None]
  - VOMITING [None]
  - WHITE BLOOD CELL COUNT DECREASED [None]
